FAERS Safety Report 17053323 (Version 1)
Quarter: 2019Q4

REPORT INFORMATION
  Report Type: Spontaneous
  Country: US (occurrence: US)
  Receive Date: 20191120
  Receipt Date: 20191120
  Transmission Date: 20200122
  Serious: No
  Sender: FDA-Public Use
  Company Number: US-NOVOPROD-675407

PATIENT
  Age: 83 Year
  Sex: Male

DRUGS (2)
  1. NOVOLOG MIX 70/30 [Suspect]
     Active Substance: INSULIN ASPART
     Dosage: 70 UNITS BID
     Route: 058
  2. NOVOLOG MIX 70/30 [Suspect]
     Active Substance: INSULIN ASPART
     Indication: TYPE 2 DIABETES MELLITUS
     Dosage: 60 UNITS BID
     Route: 058
     Dates: start: 2018

REACTIONS (10)
  - Arthritis [Unknown]
  - Device difficult to use [Unknown]
  - Gout [Unknown]
  - Injection site haemorrhage [Not Recovered/Not Resolved]
  - Injection site pain [Not Recovered/Not Resolved]
  - Diabetes mellitus inadequate control [Not Recovered/Not Resolved]
  - Device malfunction [Unknown]
  - Incorrect dose administered [Unknown]
  - Muscle spasms [Unknown]
  - Device failure [Unknown]

NARRATIVE: CASE EVENT DATE: 2019
